FAERS Safety Report 10486987 (Version 1)
Quarter: 2014Q4

REPORT INFORMATION
  Report Type: Spontaneous
  Country: US (occurrence: US)
  Receive Date: 20141001
  Receipt Date: 20141001
  Transmission Date: 20150528
  Serious: No
  Sender: FDA-Public Use
  Company Number: US-PFIZER INC-2014269766

PATIENT
  Age: 97 Year
  Sex: Male
  Weight: 63.5 kg

DRUGS (2)
  1. CELEBREX [Suspect]
     Active Substance: CELECOXIB
     Indication: ARTHRITIS
     Dosage: 200 MG, 1X/DAY
  2. CELEBREX [Suspect]
     Active Substance: CELECOXIB
     Indication: ARTHRALGIA

REACTIONS (5)
  - Respiratory disorder [Unknown]
  - Malaise [Unknown]
  - Upper respiratory tract infection [Unknown]
  - Hearing impaired [Unknown]
  - Asthenia [Unknown]

NARRATIVE: CASE EVENT DATE: 201409
